FAERS Safety Report 9788336 (Version 1)
Quarter: 2013Q4

REPORT INFORMATION
  Report Type: Spontaneous
  Country: CH (occurrence: CH)
  Receive Date: 20131230
  Receipt Date: 20131230
  Transmission Date: 20140711
  Serious: Yes (Hospitalization)
  Sender: FDA-Public Use
  Company Number: CH-BAYER-2013-155530

PATIENT
  Age: 70 Year
  Sex: Female

DRUGS (8)
  1. AVALOX [Suspect]
     Indication: BACTERIAL INFECTION
     Dosage: 400 MG, QD
     Route: 048
     Dates: start: 20131028, end: 20131105
  2. ORENCIA [Interacting]
     Indication: RHEUMATOID ARTHRITIS
     Dosage: 125 MG, OW
     Route: 058
     Dates: start: 201308, end: 20131022
  3. METHOTREXAT [Suspect]
     Indication: RHEUMATOID ARTHRITIS
     Dosage: UNK
     Dates: start: 20130128, end: 20130311
  4. ZINAT [Concomitant]
     Dosage: 500 MG, BID
     Route: 048
     Dates: start: 20131105, end: 20131115
  5. XARELTO [Concomitant]
     Dosage: 20 MG, QD
     Route: 048
     Dates: end: 201311
  6. PANTOZOL [Concomitant]
     Dosage: 40 MG, QD
     Route: 048
  7. MOTILIUM [Concomitant]
     Dosage: 1 DF, TID
     Route: 048
     Dates: end: 201311
  8. NOVALGIN [Concomitant]
     Dosage: 20 GTT, PRN
     Route: 048
     Dates: end: 201311

REACTIONS (5)
  - Enterococcal sepsis [Recovering/Resolving]
  - Splenic abscess [Recovering/Resolving]
  - Stomatitis [Recovered/Resolved]
  - Diarrhoea [Recovered/Resolved]
  - Rash [Recovered/Resolved]
